FAERS Safety Report 6527638-X (Version None)
Quarter: 2010Q1

REPORT INFORMATION
  Report Type: 
  Country: None (occurrence: None)
  Receive Date: 20100105
  Receipt Date: 20091229
  Transmission Date: 20100710
  Serious: Yes (Other)
  Sender: FDA-Public Use
  Company Number: GB-ABBOTT-10P-167-0617210-00

PATIENT
  Sex: Male

DRUGS (11)
  1. NORVIR [Suspect]
     Indication: DRUG USE FOR UNKNOWN INDICATION
  2. VIRAMUNE [Suspect]
     Indication: DRUG USE FOR UNKNOWN INDICATION
  3. EFAVIRENZ [Suspect]
     Indication: DRUG USE FOR UNKNOWN INDICATION
  4. ZIDOVUDINE [Suspect]
     Indication: DRUG USE FOR UNKNOWN INDICATION
  5. LAMIVUDINE [Suspect]
     Indication: DRUG USE FOR UNKNOWN INDICATION
  6. TENOFOVIR [Suspect]
     Indication: DRUG USE FOR UNKNOWN INDICATION
  7. DARUNAVIR [Suspect]
     Indication: DRUG USE FOR UNKNOWN INDICATION
  8. ATAZANAVIR [Suspect]
     Indication: DRUG USE FOR UNKNOWN INDICATION
  9. DIDANOSINE [Suspect]
     Indication: DRUG USE FOR UNKNOWN INDICATION
  10. ABACAVIR [Suspect]
     Indication: DRUG USE FOR UNKNOWN INDICATION
  11. LOPINAVIR [Suspect]
     Indication: DRUG USE FOR UNKNOWN INDICATION

REACTIONS (2)
  - HEPATIC FIBROSIS [None]
  - PORTAL HYPERTENSION [None]
